FAERS Safety Report 24888986 (Version 1)
Quarter: 2025Q1

REPORT INFORMATION
  Report Type: Spontaneous
  Country: US (occurrence: None)
  Receive Date: 20250124
  Receipt Date: 20250124
  Transmission Date: 20250409
  Serious: Yes (Other)
  Sender: FDA-CTU
  Company Number: None

PATIENT
  Age: 51 Year
  Sex: Female

DRUGS (3)
  1. RESTASIS [Suspect]
     Active Substance: CYCLOSPORINE
  2. XIIDRA [Suspect]
     Active Substance: LIFITEGRAST
  3. CEQUA [Suspect]
     Active Substance: CYCLOSPORINE

REACTIONS (5)
  - Drug ineffective [None]
  - Dry eye [None]
  - Condition aggravated [None]
  - Pain [None]
  - Ocular discomfort [None]

NARRATIVE: CASE EVENT DATE: 20241231
